FAERS Safety Report 17130193 (Version 1)
Quarter: 2019Q4

REPORT INFORMATION
  Report Type: Spontaneous
  Country: FR (occurrence: FR)
  Receive Date: 20191209
  Receipt Date: 20191209
  Transmission Date: 20200122
  Serious: Yes (Other)
  Sender: FDA-Public Use
  Company Number: FR-MYLANLABS-2019M1119806

PATIENT
  Age: 34 Year
  Sex: Male
  Weight: 84.5 kg

DRUGS (16)
  1. NORADRENALINE                      /00127501/ [Concomitant]
     Active Substance: NOREPINEPHRINE
     Dosage: UNK
  2. LOVENOX [Concomitant]
     Active Substance: ENOXAPARIN SODIUM
     Dosage: UNK
  3. TRAMADOL. [Suspect]
     Active Substance: TRAMADOL
     Indication: PRODUCT USED FOR UNKNOWN INDICATION
     Dosage: UNK
     Route: 048
  4. ACUPAN [Concomitant]
     Active Substance: NEFOPAM HYDROCHLORIDE
  5. DIPRIVAN [Concomitant]
     Active Substance: PROPOFOL
  6. DIAZEPAM. [Concomitant]
     Active Substance: DIAZEPAM
  7. TERCIAN                            /00759301/ [Concomitant]
     Active Substance: CYAMEMAZINE
  8. PANTOPRAZOLE [Concomitant]
     Active Substance: PANTOPRAZOLE
     Dosage: UNK
  9. METHADONE [Suspect]
     Active Substance: METHADONE HYDROCHLORIDE
     Indication: PRODUCT USED FOR UNKNOWN INDICATION
     Dosage: 80 A 120 MG/J
     Route: 048
     Dates: end: 20190621
  10. SUFENTANIL [Concomitant]
     Active Substance: SUFENTANIL
     Dosage: UNK
  11. OFLOCET                            /00731801/ [Concomitant]
     Active Substance: OFLOXACIN
     Dosage: UNK
  12. MORPHINE [Concomitant]
     Active Substance: MORPHINE
     Dosage: UNK
  13. GLUCONATE DE CALCIUM [Concomitant]
     Active Substance: CALCIUM GLUCONATE
  14. PHOCYTAN [Concomitant]
     Active Substance: .ALPHA.-GLUCOSE-1-PHOSPHATE
  15. MIDAZOLAM [Concomitant]
     Active Substance: MIDAZOLAM HYDROCHLORIDE
  16. PARACETAMOL [Concomitant]
     Active Substance: ACETAMINOPHEN
     Dosage: UNK

REACTIONS (1)
  - Electrocardiogram QT prolonged [Recovered/Resolved]

NARRATIVE: CASE EVENT DATE: 20190620
